FAERS Safety Report 7820714-0 (Version None)
Quarter: 2011Q4

REPORT INFORMATION
  Report Type: 
  Country: None (occurrence: None)
  Receive Date: 20111013
  Receipt Date: 20110928
  Transmission Date: 20120403
  Serious: Yes (Other)
  Sender: FDA-Public Use
  Company Number: 2011MA014652

PATIENT
  Age: 3 Year
  Sex: Male

DRUGS (2)
  1. OILATUM PLUS (OILATUM PLUS) [Suspect]
     Dosage: ;TOP
     Route: 061
  2. HYDROCORTISONE 2.5% CREAM [Suspect]
     Dosage: ;TOP
     Route: 061

REACTIONS (6)
  - APPLICATION SITE ERYTHEMA [None]
  - APPLICATION SITE EXFOLIATION [None]
  - INCORRECT ROUTE OF DRUG ADMINISTRATION [None]
  - APPLICATION SITE PAIN [None]
  - APPLICATION SITE VESICLES [None]
  - DRUG PRESCRIBING ERROR [None]
